FAERS Safety Report 16524345 (Version 4)
Quarter: 2019Q3

REPORT INFORMATION
  Report Type: Spontaneous
  Country: US (occurrence: US)
  Receive Date: 20190702
  Receipt Date: 20190730
  Transmission Date: 20191004
  Serious: Yes (Hospitalization)
  Sender: FDA-Public Use
  Company Number: US-ACTELION-A-NJ2019-192362

PATIENT
  Age: 9 Month
  Sex: Female

DRUGS (1)
  1. TRACLEER [Suspect]
     Active Substance: BOSENTAN
     Indication: PULMONARY ARTERIAL HYPERTENSION
     Dosage: 16 MG, BID
     Route: 048
     Dates: start: 20190405

REACTIONS (5)
  - Hypoxia [Recovered/Resolved]
  - Infusion site discomfort [Unknown]
  - Infusion site discharge [Unknown]
  - Pulmonary oedema [Unknown]
  - Respiratory distress [Unknown]

NARRATIVE: CASE EVENT DATE: 20190618
